FAERS Safety Report 15051378 (Version 1)
Quarter: 2020Q3

REPORT INFORMATION
  Report Type: Spontaneous
  Country: PT (occurrence: PT)
  Receive Date: 20180622
  Receipt Date: 20180622
  Transmission Date: 20201105
  Serious: Yes (Other)
  Sender: FDA-Public Use
  Company Number: IND-PT-009507513-1806PRT007793

PATIENT
  Age: 48 Year
  Sex: Female
  Weight: 71 kg

DRUGS (4)
  1. BETA CAROTENE [Concomitant]
     Indication: PROPHYLAXIS
     Route: 065
  2. EXXIV 60 MG FILM?COATED TABLET [Suspect]
     Active Substance: ETORICOXIB
     Indication: PAIN
     Dosage: 60 MG, 1X DIA DE MANH?
     Route: 048
     Dates: start: 20180517, end: 20180523
  3. OMEPRAZOL RATIOPHARM [Concomitant]
     Active Substance: OMEPRAZOLE
     Indication: PROPHYLAXIS AGAINST GASTROINTESTINAL ULCER
     Dosage: 20MG, 1X DIA DE MANH? EM JEJUM; 1? UTILIZA??O
     Route: 048
     Dates: start: 20180517, end: 20180523
  4. ASCORBIC ACID. [Concomitant]
     Active Substance: ASCORBIC ACID
     Indication: NASOPHARYNGITIS
     Route: 065
     Dates: end: 20180517

REACTIONS (16)
  - Nausea [Recovered/Resolved]
  - Flatulence [Recovered/Resolved]
  - Abdominal pain [Recovered/Resolved]
  - Drug hypersensitivity [Recovered/Resolved]
  - Joint swelling [Recovered/Resolved]
  - Constipation [Recovered/Resolved]
  - Throat tightness [Recovered/Resolved]
  - Swelling [Recovered/Resolved]
  - Headache [Recovered/Resolved]
  - Migraine [Recovered/Resolved]
  - Weight increased [Recovered/Resolved]
  - Dysphagia [Recovered/Resolved]
  - Fluid retention [Recovered/Resolved]
  - Discomfort [Recovered/Resolved]
  - Dyspepsia [Recovered/Resolved]
  - Peripheral swelling [Recovered/Resolved]

NARRATIVE: CASE EVENT DATE: 20180522
